FAERS Safety Report 7336463-1 (Version None)
Quarter: 2011Q1

REPORT INFORMATION
  Report Type: 
  Country: None (occurrence: None)
  Receive Date: 20110307
  Receipt Date: 20110222
  Transmission Date: 20110831
  Serious: Yes (Disabling)
  Sender: FDA-Public Use
  Company Number: CA-MYLANLABS-2011S1003795

PATIENT
  Age: 23 Year
  Sex: Female

DRUGS (3)
  1. CISPLATIN [Suspect]
     Dosage: FROM DAY 4 OF FIRST 21-DAY CYCLE; FIVE TIMES/CYCLE
     Route: 065
  2. ETOPOSIDE [Suspect]
     Indication: MEDULLOBLASTOMA
     Dosage: FIVE TIMES/21-DAY CYCLE
     Route: 065
  3. CISPLATIN [Suspect]
     Indication: MEDULLOBLASTOMA
     Dosage: FIVE TIMES/21-DAY CYCLE; REDUCED TO 30 MG/M2/DAY ON DAY 4 OF 1ST CYCLE
     Route: 065

REACTIONS (2)
  - RENAL IMPAIRMENT [None]
  - NEUROPATHY PERIPHERAL [None]
